FAERS Safety Report 9479210 (Version 2)
Quarter: 2013Q3

REPORT INFORMATION
  Report Type: Spontaneous
  Country: DE (occurrence: DE)
  Receive Date: 20130827
  Receipt Date: 20130910
  Transmission Date: 20140515
  Serious: Yes (Other)
  Sender: FDA-Public Use
  Company Number: DE-CUBIST PHARMACEUTICALS, INC.-2013CBST000710

PATIENT
  Sex: 0

DRUGS (2)
  1. CUBICIN [Suspect]
     Indication: ENDOCARDITIS
     Dosage: UNK UNK UNK
     Route: 065
     Dates: start: 20130802, end: 20130812
  2. CUBICIN [Suspect]
     Indication: INTERVERTEBRAL DISCITIS

REACTIONS (1)
  - Blood creatinine increased [Recovering/Resolving]
